FAERS Safety Report 9166992 (Version 1)
Quarter: 2013Q1

REPORT INFORMATION
  Report Type: Report from Study
  Country: US (occurrence: US)
  Receive Date: 20130317
  Receipt Date: 20130317
  Transmission Date: 20140127
  Serious: Yes (Hospitalization)
  Sender: FDA-Public Use
  Company Number: US-TEVA-391741USA

PATIENT
  Age: 82 Year
  Sex: Female

DRUGS (8)
  1. TREANDA [Suspect]
     Indication: NON-HODGKIN^S LYMPHOMA
     Dosage: Q28D
     Route: 042
     Dates: start: 20100428
  2. PEGFILGRASTIM [Concomitant]
     Indication: WHITE BLOOD CELL COUNT DECREASED
     Dates: start: 20100724, end: 20100724
  3. ASPIRIN [Concomitant]
     Indication: HYPERTENSION
     Dates: start: 2002, end: 20100911
  4. HYDROCHLOROTHIAZIDE [Concomitant]
     Indication: HYPERTENSION
     Dates: start: 1991, end: 20100911
  5. AVAPRO [Concomitant]
     Indication: HYPERTENSION
     Dates: start: 1991, end: 20100911
  6. LORATADINE [Concomitant]
     Indication: HYPERSENSITIVITY
     Dates: start: 2000, end: 20100911
  7. DOCUSATE SODIUM [Concomitant]
     Indication: CONSTIPATION
     Dates: start: 20100529, end: 20100911
  8. CULTURELLE-HERBAL, HOMEOPATHIC AND DIETARY SUPPLEMENTS [Concomitant]
     Indication: CONSTIPATION
     Dates: start: 20100625, end: 20100911

REACTIONS (1)
  - Atrial fibrillation [Recovered/Resolved]
